FAERS Safety Report 8680002 (Version 2)
Quarter: 2013Q1

REPORT INFORMATION
  Report Type: Spontaneous
  Country: IT (occurrence: IT)
  Receive Date: 20120724
  Receipt Date: 20130219
  Transmission Date: 20140127
  Serious: Yes (Life-Threatening)
  Sender: FDA-Public Use
  Company Number: IT-MYLANLABS-2012S1014049

PATIENT
  Age: 29 Year
  Sex: Male

DRUGS (1)
  1. CETIRIZINE [Suspect]
     Indication: RHINITIS ALLERGIC
     Route: 048
     Dates: start: 20120615, end: 20120615

REACTIONS (1)
  - Laryngeal oedema [Recovered/Resolved]
